FAERS Safety Report 8993592 (Version 2)
Quarter: 2013Q1

REPORT INFORMATION
  Report Type: Report from Study
  Country: US (occurrence: US)
  Receive Date: 20130102
  Receipt Date: 20130111
  Transmission Date: 20140127
  Serious: Yes (Death)
  Sender: FDA-Public Use
  Company Number: US-ROCHE-1175337

PATIENT
  Sex: 0

DRUGS (2)
  1. ALTEPLASE [Suspect]
     Indication: ISCHAEMIC STROKE
     Dosage: 900 MCG/KG, 10 % BOLUS, 90 % INFUSION
     Route: 040
  2. ALTEPLASE [Suspect]
     Indication: CAROTID ARTERY OCCLUSION
     Dosage: 900 MCG/KG, 10 % BOLUS, 90 % INFUSION
     Route: 041

REACTIONS (1)
  - Drug ineffective [Fatal]
